FAERS Safety Report 12873354 (Version 1)
Quarter: 2016Q4

REPORT INFORMATION
  Report Type: Spontaneous
  Country: US (occurrence: US)
  Receive Date: 20161021
  Receipt Date: 20161021
  Transmission Date: 20170207
  Serious: No
  Sender: FDA-Public Use
  Company Number: US-ALLERGAN-1518281US

PATIENT
  Sex: Female

DRUGS (3)
  1. FML [Suspect]
     Active Substance: FLUOROMETHOLONE
     Indication: EYE IRRITATION
  2. FML [Suspect]
     Active Substance: FLUOROMETHOLONE
     Indication: EYE PRURITUS
     Dosage: UNK
     Route: 047
     Dates: start: 20150429, end: 2015
  3. AMLODIPINE [Concomitant]
     Active Substance: AMLODIPINE BESYLATE
     Indication: HYPERTENSION

REACTIONS (2)
  - Night blindness [Not Recovered/Not Resolved]
  - Vision blurred [Not Recovered/Not Resolved]

NARRATIVE: CASE EVENT DATE: 2015
